FAERS Safety Report 4690589-X (Version None)
Quarter: 2005Q2

REPORT INFORMATION
  Report Type: 
  Country: None (occurrence: None)
  Receive Date: 20050615
  Receipt Date: 20050602
  Transmission Date: 20051028
  Serious: Yes (Disabling)
  Sender: FDA-Public Use
  Company Number: DE-BOEHRINGER INGELHEIM PHARMACEUTICALS, INC.-2005-DE-02115DE

PATIENT
  Age: 63 Year
  Sex: Male

DRUGS (1)
  1. SPIRIVA [Suspect]
     Indication: CHRONIC OBSTRUCTIVE PULMONARY DISEASE
     Route: 055
     Dates: start: 20030101

REACTIONS (5)
  - EPISTAXIS [None]
  - HAEMORRHAGE [None]
  - MUCOSAL HAEMORRHAGE [None]
  - SKIN HAEMORRHAGE [None]
  - TOOTH LOSS [None]
